FAERS Safety Report 23298825 (Version 2)
Quarter: 2024Q1

REPORT INFORMATION
  Report Type: Spontaneous
  Country: IT (occurrence: IT)
  Receive Date: 20231215
  Receipt Date: 20240123
  Transmission Date: 20240410
  Serious: Yes (Other)
  Sender: FDA-Public Use
  Company Number: IT-ROCHE-3465055

PATIENT
  Age: 74 Year
  Sex: Female
  Weight: 50 kg

DRUGS (4)
  1. GEMCITABINE HYDROCHLORIDE [Suspect]
     Active Substance: GEMCITABINE HYDROCHLORIDE
     Indication: Diffuse large B-cell lymphoma
     Dosage: UNK UNK, UNKNOWN
     Route: 065
     Dates: start: 20230818, end: 20230825
  2. OXALIPLATIN [Suspect]
     Active Substance: OXALIPLATIN
     Indication: Diffuse large B-cell lymphoma
     Dosage: UNK UNK, UNKNOWN
     Route: 065
     Dates: start: 20230818, end: 20230825
  3. RITUXIMAB [Suspect]
     Active Substance: RITUXIMAB
     Indication: Diffuse large B-cell lymphoma
     Dosage: UNK UNK, UNKNOWN
     Route: 065
     Dates: start: 20221212, end: 20230328
  4. RITUXIMAB [Suspect]
     Active Substance: RITUXIMAB
     Dosage: UNK UNK, UNKNOWN
     Route: 065
     Dates: start: 20230818, end: 20230825

REACTIONS (3)
  - Deep vein thrombosis [Unknown]
  - Disease progression [Unknown]
  - Off label use [Unknown]
